FAERS Safety Report 6698753-5 (Version None)
Quarter: 2010Q2

REPORT INFORMATION
  Report Type: 
  Country: None (occurrence: None)
  Receive Date: 20100427
  Receipt Date: 20100415
  Transmission Date: 20101027
  Serious: Yes (Other)
  Sender: FDA-Public Use
  Company Number: PHEH2008US09460

PATIENT
  Sex: Female

DRUGS (40)
  1. ELIDEL [Suspect]
     Indication: ECZEMA
     Dosage: 20 MG, QD
     Dates: start: 20041101
  2. TAMOXIFEN CITRATE [Concomitant]
     Dosage: UNK
     Dates: start: 20080601
  3. CALCIUM [Concomitant]
  4. VITAMIN D [Concomitant]
  5. TYLENOL-500 [Concomitant]
  6. MOTRIN [Concomitant]
  7. PACLITAXEL [Concomitant]
     Dosage: UNK
  8. NEULASTA [Concomitant]
  9. ATIVAN [Concomitant]
  10. ZOFRAN [Concomitant]
  11. ONDANSETRON [Concomitant]
  12. CEFADROXIL [Concomitant]
  13. CEPHALEXIN [Concomitant]
  14. HYDROCODONE BITARTRATE [Concomitant]
  15. SULFAMETHOXAZOLE [Concomitant]
  16. OXYCODONE [Concomitant]
  17. PROCHLORPERAZINE [Concomitant]
  18. CIPRO [Concomitant]
  19. ZITHROMAX [Concomitant]
  20. LOPROX [Concomitant]
  21. MENTAX ^KAKEN^ [Concomitant]
  22. LUXIQ [Concomitant]
  23. CORTISPORIN [Concomitant]
     Dosage: 3.5 MG - 10,000 UNITS/ML / QID
     Dates: start: 20061025
  24. PERIDEX [Concomitant]
     Indication: ORAL DISORDER
     Dosage: 0.12% / TID
     Dates: start: 20070221
  25. KEFLEX [Concomitant]
     Indication: ORAL DISORDER
     Dosage: 500 MG / QID
     Route: 048
     Dates: start: 20070130
  26. BACTRIM DS [Concomitant]
     Dosage: 160 MG-800MG / BID
     Route: 048
     Dates: start: 20061005
  27. PERCOCET [Concomitant]
     Dosage: 5/325 MG / Q4-6H PRN
     Route: 048
  28. COLACE [Concomitant]
     Dosage: 100 MG / BID
     Route: 048
  29. CLINDAMYCIN [Concomitant]
     Dosage: 300 MG / TWICE DAILY
     Route: 048
  30. NAPROXEN [Concomitant]
     Dosage: UNK / BID PRN
  31. FLEXERIL [Concomitant]
     Dosage: 5 MG / QHS
     Route: 048
  32. CIPRO [Concomitant]
     Dosage: 500 MG / QD
  33. ALLEGRA D 24 HOUR [Concomitant]
  34. DIFLUCAN [Concomitant]
  35. AKNE-MYCIN [Concomitant]
  36. CUTIVATE [Concomitant]
  37. NEO-POLYCIN [Concomitant]
  38. LIDOCAINE [Concomitant]
  39. CYCLOBENZAPRINE [Concomitant]
  40. DIAZEPAM [Concomitant]

REACTIONS (30)
  - ALOPECIA [None]
  - ANAEMIA [None]
  - ARTHRALGIA [None]
  - BREAST CANCER [None]
  - BREAST RECONSTRUCTION [None]
  - DERMOID CYST [None]
  - DYSGEUSIA [None]
  - EAR PAIN [None]
  - EJECTION FRACTION DECREASED [None]
  - FATIGUE [None]
  - FIBROSIS [None]
  - FOREIGN BODY REACTION [None]
  - INFLAMMATION [None]
  - INJURY [None]
  - JOINT STIFFNESS [None]
  - LEUKOCYTOSIS [None]
  - LYMPHADENOPATHY [None]
  - LYMPHOEDEMA [None]
  - LYMPHOMA [None]
  - MAMMARY DUCT ECTASIA [None]
  - MASTECTOMY [None]
  - MUSCLE DISORDER [None]
  - MYALGIA [None]
  - ORAL DISORDER [None]
  - OTITIS EXTERNA [None]
  - PRURITUS [None]
  - SCAR [None]
  - SCAR EXCISION [None]
  - SKIN EXFOLIATION [None]
  - URINARY TRACT INFECTION [None]
